FAERS Safety Report 8186840-4 (Version None)
Quarter: 2012Q1

REPORT INFORMATION
  Report Type: 
  Country: None (occurrence: None)
  Receive Date: 20120301
  Receipt Date: 20120221
  Transmission Date: 20120608
  Serious: Yes (Other)
  Sender: FDA-Public Use
  Company Number: 2011SP016389

PATIENT
  Sex: Female

DRUGS (1)
  1. NASONEX [Suspect]
     Indication: NASOPHARYNGITIS
     Dosage: 50 MCG;NAS
     Route: 045
     Dates: end: 20110317

REACTIONS (5)
  - SWOLLEN TONGUE [None]
  - PHARYNGEAL OEDEMA [None]
  - EYE DISORDER [None]
  - DYSARTHRIA [None]
  - AGEUSIA [None]
